FAERS Safety Report 8801778 (Version 1)
Quarter: 2012Q4

REPORT INFORMATION
  Report Type: 
  Country: US (occurrence: US)
  Receive Date: 20120921
  Receipt Date: 20120921
  Transmission Date: 20130627
  Serious: No
  Sender: FDA-Public Use
  Company Number: US-PFIZER INC-2012233435

PATIENT
  Age: 52 Year
  Sex: Male
  Weight: 95.2 kg

DRUGS (2)
  1. CHANTIX [Suspect]
     Indication: SMOKING CESSATION THERAPY
     Dosage: 0.5 mg, daily
     Route: 048
     Dates: start: 20120917, end: 20120918
  2. CORTEF [Concomitant]
     Indication: SEASONAL ALLERGY
     Dosage: UNK, daily

REACTIONS (1)
  - Headache [Recovered/Resolved]
